FAERS Safety Report 7325034-9 (Version None)
Quarter: 2011Q1

REPORT INFORMATION
  Report Type: 
  Country: None (occurrence: None)
  Receive Date: 20110302
  Receipt Date: 20110216
  Transmission Date: 20110831
  Serious: Yes (Other)
  Sender: FDA-Public Use
  Company Number: US-BAYER-2011-015484

PATIENT
  Sex: Male

DRUGS (1)
  1. AVELOX [Suspect]
     Indication: INFECTION
     Dosage: 400 MG, QD
     Route: 048
     Dates: start: 20110213, end: 20110216

REACTIONS (4)
  - SELF-INJURIOUS IDEATION [None]
  - PALPITATIONS [None]
  - HALLUCINATION [None]
  - SUICIDAL IDEATION [None]
